FAERS Safety Report 16624205 (Version 1)
Quarter: 2019Q3

REPORT INFORMATION
  Report Type: Spontaneous
  Country: US (occurrence: US)
  Receive Date: 20190724
  Receipt Date: 20190724
  Transmission Date: 20191004
  Serious: No
  Sender: FDA-Public Use
  Company Number: US-GLENMARK PHARMACEUTICALS-2019GMK039743

PATIENT

DRUGS (1)
  1. NORETHINDRONE. [Suspect]
     Active Substance: NORETHINDRONE
     Indication: ORAL CONTRACEPTION
     Dosage: 0.35 MG, OD
     Route: 048
     Dates: start: 201710

REACTIONS (4)
  - Inappropriate schedule of product administration [Unknown]
  - Poor quality product administered [Unknown]
  - No adverse event [Unknown]
  - Product contamination physical [Unknown]

NARRATIVE: CASE EVENT DATE: 20190203
